FAERS Safety Report 8002479-5 (Version None)
Quarter: 2011Q4

REPORT INFORMATION
  Report Type: 
  Country: None (occurrence: None)
  Receive Date: 20111222
  Receipt Date: 20111216
  Transmission Date: 20120403
  Serious: Yes (Life-Threatening)
  Sender: FDA-Public Use
  Company Number: FR-JNJFOC-20111208103

PATIENT
  Sex: Male
  Weight: 38.2 kg

DRUGS (8)
  1. MODULEN [Concomitant]
  2. PREDNISONE TAB [Concomitant]
  3. REMICADE [Suspect]
     Route: 042
     Dates: start: 20111118
  4. IRON SUCROSE [Concomitant]
  5. REMICADE [Suspect]
     Route: 042
     Dates: start: 20111215
  6. AZATHIOPRINE [Concomitant]
  7. OMEPRAZOLE [Concomitant]
  8. REMICADE [Suspect]
     Indication: CROHN'S DISEASE
     Route: 042
     Dates: start: 20100301

REACTIONS (5)
  - CHEST DISCOMFORT [None]
  - THROAT IRRITATION [None]
  - INFUSION RELATED REACTION [None]
  - TACHYCARDIA [None]
  - ANAPHYLACTIC REACTION [None]
